FAERS Safety Report 13814807 (Version 2)
Quarter: 2017Q3

REPORT INFORMATION
  Report Type: Spontaneous
  Country: ES (occurrence: ES)
  Receive Date: 20170731
  Receipt Date: 20170824
  Transmission Date: 20171127
  Serious: Yes (Hospitalization, Other)
  Sender: FDA-Public Use
  Company Number: ES-AUROBINDO-AUR-APL-2017-37727

PATIENT
  Age: 56 Year
  Sex: Male
  Weight: 63 kg

DRUGS (3)
  1. RIBAVIRIN. [Suspect]
     Active Substance: RIBAVIRIN
     Indication: LIVER DISORDER
     Dosage: 400 MG/12 HOURS
     Route: 065
  2. PEGYLATED INTERFERON NOS [Suspect]
     Active Substance: PEGINTERFERON ALFA-2A OR PEGINTERFERON ALFA-2B OR PEGINTERFERON BETA-1A OR PEGINTERFERON LAMBDA-1A
     Indication: LIVER DISORDER
     Dosage: 2?180 ?G/WEEK
     Route: 065
  3. TELAPREVIR [Suspect]
     Active Substance: TELAPREVIR
     Indication: LIVER DISORDER
     Dosage: 750 MG/8 HOURS
     Route: 065

REACTIONS (5)
  - Thrombocytopenia [Recovering/Resolving]
  - Bone marrow failure [Recovering/Resolving]
  - Epistaxis [Recovering/Resolving]
  - Asthenia [Recovering/Resolving]
  - Pyrexia [Recovering/Resolving]
